FAERS Safety Report 11012343 (Version 1)
Quarter: 2015Q2

REPORT INFORMATION
  Report Type: Spontaneous
  Country: US (occurrence: None)
  Receive Date: 20150410
  Receipt Date: 20150410
  Transmission Date: 20150821
  Serious: Yes (Hospitalization)
  Sender: FDA-Public Use
  Company Number: None

PATIENT
  Age: 70 Year
  Sex: Male
  Weight: 89 kg

DRUGS (1)
  1. EVEROLIMUS [Suspect]
     Active Substance: EVEROLIMUS
     Dates: end: 20150329

REACTIONS (5)
  - Pain in extremity [None]
  - Bone lesion [None]
  - Osteolysis [None]
  - Musculoskeletal pain [None]
  - Pain [None]

NARRATIVE: CASE EVENT DATE: 20150330
